FAERS Safety Report 6012652-3 (Version None)
Quarter: 2008Q4

REPORT INFORMATION
  Report Type: 
  Country: None (occurrence: None)
  Receive Date: 20081217
  Receipt Date: 20081211
  Transmission Date: 20090506
  Serious: Yes (Other)
  Sender: FDA-Public Use
  Company Number: TUK2008A00163

PATIENT
  Sex: Male

DRUGS (5)
  1. ACTOS [Suspect]
     Indication: TYPE 2 DIABETES MELLITUS
     Dosage: 15 MG ORAL
     Route: 048
  2. INSULIN DETEMIR (INSULIN DETEMIR) [Concomitant]
  3. ASPIRIN [Concomitant]
  4. STATIN (HMG COA REDUCTASE INHIBITORS) [Concomitant]
  5. ACE INHTBITOR (ACE INHIBITOR NOS) [Concomitant]

REACTIONS (1)
  - CEREBROVASCULAR ACCIDENT [None]
